FAERS Safety Report 6765778-0 (Version None)
Quarter: 2010Q2

REPORT INFORMATION
  Report Type: 
  Country: None (occurrence: None)
  Receive Date: 20100609
  Receipt Date: 20100529
  Transmission Date: 20101027
  Serious: Yes (Other)
  Sender: FDA-Public Use
  Company Number: 2010AP001127

PATIENT
  Age: 47 Year
  Sex: Male

DRUGS (6)
  1. VALPROIC ACID SYRUP [Suspect]
     Indication: DRUG DEPENDENCE
     Dosage: 750 MG; QD
  2. BENZODIAZEPINE DERIVATIVES [Concomitant]
  3. . [Concomitant]
  4. BUPRENORPHINE [Concomitant]
  5. NALOXONE [Concomitant]
  6. LORAZEPAM [Concomitant]

REACTIONS (9)
  - ABDOMINAL DISTENSION [None]
  - AGITATION [None]
  - CONFUSIONAL STATE [None]
  - DYSARTHRIA [None]
  - DYSPEPSIA [None]
  - GASTRIC OCCULT BLOOD POSITIVE [None]
  - HYPERAMMONAEMIC ENCEPHALOPATHY [None]
  - OXYGEN SATURATION DECREASED [None]
  - VOMITING [None]
